FAERS Safety Report 23570032 (Version 1)
Quarter: 2024Q1

REPORT INFORMATION
  Report Type: Spontaneous
  Country: US (occurrence: None)
  Receive Date: 20240226
  Receipt Date: 20240226
  Transmission Date: 20240410
  Serious: Yes (Death)
  Sender: FDA-Public Use
  Company Number: None

PATIENT
  Age: 59 Year
  Sex: Female

DRUGS (2)
  1. ISENTRESS [Suspect]
     Active Substance: RALTEGRAVIR POTASSIUM
     Indication: HIV infection
     Dosage: 2  MG DAILY ORAL?
     Route: 048
     Dates: start: 20200101
  2. DESCOVY [Suspect]
     Active Substance: EMTRICITABINE\TENOFOVIR ALAFENAMIDE FUMARATE
     Indication: HIV infection
     Dosage: 1 MG DAILY ORAL
     Route: 048
     Dates: start: 20200101

REACTIONS (2)
  - Throat cancer [None]
  - Disease complication [None]

NARRATIVE: CASE EVENT DATE: 20240218
